FAERS Safety Report 23958955 (Version 4)
Quarter: 2024Q3

REPORT INFORMATION
  Report Type: Spontaneous
  Country: US (occurrence: US)
  Receive Date: 20240611
  Receipt Date: 20240710
  Transmission Date: 20241016
  Serious: Yes (Other)
  Sender: AMGEN
  Company Number: US-AMGEN-USASP2024113867

PATIENT
  Age: 65 Year
  Sex: Male

DRUGS (7)
  1. OTEZLA [Suspect]
     Active Substance: APREMILAST
     Indication: Psoriatic arthropathy
     Dosage: 30 MILLIGRAM, BID
     Route: 048
     Dates: start: 20240416
  2. CELECOXIB [Concomitant]
     Active Substance: CELECOXIB
     Dosage: 200 MILLIGRAM
  3. ATROPINE\DIPHENOXYLATE [Concomitant]
     Active Substance: ATROPINE\DIPHENOXYLATE
     Dosage: 2.5 MILLIGRAM
  4. JARDIANCE [Concomitant]
     Active Substance: EMPAGLIFLOZIN
     Dosage: 25 MILLIGRAM
  5. PIOGLITAZONE [Concomitant]
     Active Substance: PIOGLITAZONE
     Dosage: 45 MILLIGRAM
  6. PRAVASTATIN [Concomitant]
     Active Substance: PRAVASTATIN
     Dosage: 10 MILLIGRAM
  7. SULFASALAZINE DELAYED-RELEASE [Concomitant]
     Active Substance: SULFASALAZINE
     Dosage: 500 MILLIGRAM

REACTIONS (1)
  - Psoriatic arthropathy [Unknown]

NARRATIVE: CASE EVENT DATE: 20240101
